FAERS Safety Report 8047703-8 (Version None)
Quarter: 2012Q1

REPORT INFORMATION
  Report Type: 
  Country: None (occurrence: None)
  Receive Date: 20120116
  Receipt Date: 20120112
  Transmission Date: 20120608
  Serious: No
  Sender: FDA-Public Use
  Company Number: US-TEVA-317297USA

PATIENT
  Sex: Female

DRUGS (2)
  1. PROAIR HFA [Suspect]
     Indication: ASTHMA
     Route: 055
     Dates: start: 20120108
  2. TRANDOLAPRIL [Concomitant]
     Indication: HYPERTENSION
     Dosage: 2 MILLIGRAM;
     Route: 048

REACTIONS (1)
  - COUGH [None]
